FAERS Safety Report 21515622 (Version 1)
Quarter: 2022Q4

REPORT INFORMATION
  Report Type: Spontaneous
  Country: US (occurrence: US)
  Receive Date: 20221027
  Receipt Date: 20221027
  Transmission Date: 20230112
  Serious: Yes (Other)
  Sender: FDA-Public Use
  Company Number: US-FreseniusKabi-FK202214364

PATIENT
  Age: 27 Year
  Sex: Female

DRUGS (37)
  1. PROPOFOL [Suspect]
     Active Substance: PROPOFOL
     Indication: Sedation
     Route: 065
  2. PROPOFOL [Suspect]
     Active Substance: PROPOFOL
  3. PROPOFOL [Suspect]
     Active Substance: PROPOFOL
     Dosage: CONTINUOUS
     Route: 065
  4. MIDAZOLAM [Suspect]
     Active Substance: MIDAZOLAM
     Indication: Delirium
     Dosage: 1-10 MG/HR
     Route: 065
  5. MIDAZOLAM [Suspect]
     Active Substance: MIDAZOLAM
     Indication: Agitation
  6. HALOPERIDOL [Suspect]
     Active Substance: HALOPERIDOL
     Indication: Delirium
     Dosage: APPROXIMATELY 6 MG/DAY, AS NEEDED BASIS
     Route: 065
  7. HALOPERIDOL [Suspect]
     Active Substance: HALOPERIDOL
     Indication: Agitation
  8. DEXMEDETOMIDINE [Suspect]
     Active Substance: DEXMEDETOMIDINE
     Indication: Delirium
     Dosage: 0.1-0.7 MCG/KG/HR
     Route: 065
  9. DEXMEDETOMIDINE [Suspect]
     Active Substance: DEXMEDETOMIDINE
     Indication: Agitation
  10. FENTANYL [Suspect]
     Active Substance: FENTANYL
     Indication: Sedation
     Dosage: CONTINUOUS
     Route: 065
  11. FENTANYL [Suspect]
     Active Substance: FENTANYL
     Route: 065
  12. KETAMINE [Suspect]
     Active Substance: KETAMINE
     Indication: Delirium
     Dosage: 1-10 MCG/KG/MIN
     Route: 065
  13. KETAMINE [Suspect]
     Active Substance: KETAMINE
     Indication: Agitation
  14. ALPRAZOLAM [Suspect]
     Active Substance: ALPRAZOLAM
     Indication: Delirium
     Route: 065
  15. ALPRAZOLAM [Suspect]
     Active Substance: ALPRAZOLAM
     Indication: Agitation
  16. CLONAZEPAM [Suspect]
     Active Substance: CLONAZEPAM
     Indication: Delirium
     Route: 065
  17. CLONAZEPAM [Suspect]
     Active Substance: CLONAZEPAM
     Indication: Agitation
  18. DIAZEPAM [Suspect]
     Active Substance: DIAZEPAM
     Indication: Delirium
     Route: 065
  19. DIAZEPAM [Suspect]
     Active Substance: DIAZEPAM
     Indication: Agitation
  20. GABAPENTIN [Suspect]
     Active Substance: GABAPENTIN
     Indication: Delirium
     Route: 065
  21. GABAPENTIN [Suspect]
     Active Substance: GABAPENTIN
     Indication: Agitation
  22. TRAZODONE [Suspect]
     Active Substance: TRAZODONE HYDROCHLORIDE
     Indication: Delirium
     Route: 065
  23. TRAZODONE [Suspect]
     Active Substance: TRAZODONE HYDROCHLORIDE
     Indication: Agitation
  24. SERTRALINE [Suspect]
     Active Substance: SERTRALINE HYDROCHLORIDE
     Indication: Delirium
     Route: 065
  25. SERTRALINE [Suspect]
     Active Substance: SERTRALINE HYDROCHLORIDE
     Indication: Agitation
  26. QUETIAPINE [Suspect]
     Active Substance: QUETIAPINE
     Indication: Delirium
     Dosage: 200MG
     Route: 065
  27. QUETIAPINE [Suspect]
     Active Substance: QUETIAPINE
     Indication: Agitation
     Route: 065
  28. LORAZEPAM [Suspect]
     Active Substance: LORAZEPAM
     Indication: Delirium
     Dosage: 1-10 MG/HR
     Route: 065
  29. LORAZEPAM [Suspect]
     Active Substance: LORAZEPAM
     Indication: Agitation
     Dosage: APPROXIMATELY 8MG/DAY, AS NEEDED BASIS
     Route: 065
  30. FENTANYL TRANSDERMAL SYSTEM [Suspect]
     Active Substance: FENTANYL
     Indication: Delirium
     Dosage: 200 MCG/HR
     Route: 062
  31. FENTANYL TRANSDERMAL SYSTEM [Suspect]
     Active Substance: FENTANYL
     Indication: Agitation
     Dosage: 200 MCG/HR
     Route: 062
  32. METHADONE [Suspect]
     Active Substance: METHADONE HYDROCHLORIDE
     Indication: Delirium
     Route: 065
  33. METHADONE [Suspect]
     Active Substance: METHADONE HYDROCHLORIDE
     Indication: Agitation
  34. HYDROMORPHONE [Concomitant]
     Active Substance: HYDROMORPHONE
     Indication: Delirium
     Route: 042
  35. HYDROMORPHONE [Concomitant]
     Active Substance: HYDROMORPHONE
     Indication: Agitation
  36. OXYCODONE [Concomitant]
     Active Substance: OXYCODONE
     Indication: Delirium
     Route: 065
  37. OXYCODONE [Concomitant]
     Active Substance: OXYCODONE
     Indication: Agitation

REACTIONS (1)
  - Posterior reversible encephalopathy syndrome [Recovering/Resolving]
